FAERS Safety Report 4327954-6 (Version None)
Quarter: 2004Q1

REPORT INFORMATION
  Report Type: 
  Country: None (occurrence: None)
  Receive Date: 20040325
  Receipt Date: 20040311
  Transmission Date: 20041129
  Serious: Yes (Other)
  Sender: FDA-Public Use
  Company Number: 2004017365

PATIENT
  Age: 19 Year
  Sex: Female
  Weight: 63.5036 kg

DRUGS (5)
  1. UNASYN [Suspect]
     Indication: URINARY TRACT INFECTION
     Dosage: INTRAVENOUS
     Route: 042
     Dates: start: 20031201
  2. MORPHINE SULFATE [Concomitant]
  3. ALL OTHER THERAPEUTIC PRODUCTS [Concomitant]
  4. PHENAZOPYRIDINE HYDROCHLORIDE (PHENAZOPYRIDINE HYDROCHLORIDE) [Concomitant]
  5. MEDROXYPROGESTERONE ACETATE [Concomitant]

REACTIONS (14)
  - AMNESIA [None]
  - CHEST PAIN [None]
  - CONDITION AGGRAVATED [None]
  - DEVICE FAILURE [None]
  - DISEASE RECURRENCE [None]
  - DRUG HYPERSENSITIVITY [None]
  - ESCHERICHIA INFECTION [None]
  - ESCHERICHIA URINARY TRACT INFECTION [None]
  - INCOHERENT [None]
  - LETHARGY [None]
  - LOWER RESPIRATORY TRACT INFECTION [None]
  - PATHOGEN RESISTANCE [None]
  - UPPER RESPIRATORY TRACT INFECTION [None]
  - VOMITING [None]
